FAERS Safety Report 12081019 (Version 3)
Quarter: 2016Q1

REPORT INFORMATION
  Report Type: Spontaneous
  Country: US (occurrence: US)
  Receive Date: 20160216
  Receipt Date: 20160318
  Transmission Date: 20160526
  Serious: No
  Sender: FDA-Public Use
  Company Number: US-PFIZER INC-2016030102

PATIENT
  Age: 5 Year
  Sex: Male
  Weight: 15.8 kg

DRUGS (1)
  1. QUILLIVANT XR [Suspect]
     Active Substance: METHYLPHENIDATE HYDROCHLORIDE
     Indication: ATTENTION DEFICIT/HYPERACTIVITY DISORDER
     Dosage: 300 MG ITS 60 ML WHEN RECONSTITUTED THEN 25 MG-5 ML AND HE WAS SUPPOSED TO TAKE 2 ML A DAY

REACTIONS (4)
  - Drug dispensing error [Unknown]
  - Product use issue [Unknown]
  - Poor quality drug administered [Unknown]
  - Withdrawal syndrome [Unknown]
